FAERS Safety Report 4618584-7 (Version None)
Quarter: 2005Q1

REPORT INFORMATION
  Report Type: 
  Country: None (occurrence: None)
  Receive Date: 20050323
  Receipt Date: 20050304
  Transmission Date: 20050727
  Serious: Yes (Hospitalization)
  Sender: FDA-Public Use
  Company Number: JP_040202588

PATIENT
  Age: 6 Year
  Sex: Male
  Weight: 18 kg

DRUGS (1)
  1. HUMATROPE [Suspect]
     Indication: CHONDRODYSTROPHY
     Dosage: 6 MG WEEK
     Dates: start: 20031010

REACTIONS (1)
  - EPILEPSY [None]
